FAERS Safety Report 5409475-2 (Version None)
Quarter: 2007Q3

REPORT INFORMATION
  Report Type: 
  Country: None (occurrence: None)
  Receive Date: 20070807
  Receipt Date: 20070807
  Transmission Date: 20080115
  Serious: No
  Sender: FDA-Public Use
  Company Number: None

PATIENT
  Sex: Female
  Weight: 58.9676 kg

DRUGS (2)
  1. ACTONEL [Suspect]
     Indication: OSTEOPOROSIS
     Dosage: 35MG ONCE/WEEK PO
     Route: 048
     Dates: start: 20030115, end: 20050915
  2. BONIVA [Suspect]
     Indication: OSTEOPOROSIS
     Dosage: 150 MG ONCE/MONTH PO
     Route: 048
     Dates: start: 20050915, end: 20070805

REACTIONS (1)
  - OSTEONECROSIS [None]
